FAERS Safety Report 17514056 (Version 1)
Quarter: 2020Q1

REPORT INFORMATION
  Report Type: Spontaneous
  Country: AU (occurrence: AU)
  Receive Date: 20200306
  Receipt Date: 20200306
  Transmission Date: 20200409
  Serious: Yes (Hospitalization)
  Sender: FDA-Public Use
  Company Number: AU-BAXTER-2020BAX004748

PATIENT
  Age: 53 Year
  Sex: Female

DRUGS (6)
  1. DARZALEX [Suspect]
     Active Substance: DARATUMUMAB
     Dosage: DOSE RE-INTRODUCED
     Route: 042
     Dates: start: 202002
  2. CYCLOPHOSPHAMIDE. [Suspect]
     Active Substance: CYCLOPHOSPHAMIDE
     Indication: AMYLOIDOSIS
     Route: 048
     Dates: start: 20200226, end: 20200226
  3. SODIUM CHLORIDE (VIAFLO) 1000ML [Suspect]
     Active Substance: SODIUM CHLORIDE
     Route: 042
     Dates: start: 202002
  4. SODIUM CHLORIDE (VIAFLO) 1000ML [Suspect]
     Active Substance: SODIUM CHLORIDE
     Indication: MEDICATION DILUTION
     Route: 042
     Dates: start: 20200226, end: 20200226
  5. DARZALEX [Suspect]
     Active Substance: DARATUMUMAB
     Indication: RENAL AMYLOIDOSIS
     Dosage: IN 500 ML BAG
     Route: 042
     Dates: start: 20200226, end: 20200226
  6. BORTEZOMIB. [Suspect]
     Active Substance: BORTEZOMIB
     Indication: AMYLOIDOSIS
     Route: 058
     Dates: start: 20200226, end: 20200226

REACTIONS (7)
  - Nasal obstruction [Recovered/Resolved]
  - Throat tightness [Recovered/Resolved]
  - Dysphonia [Recovered/Resolved]
  - Adverse reaction [Unknown]
  - Sneezing [Recovered/Resolved]
  - Chest discomfort [Recovered/Resolved]
  - Rhinorrhoea [Recovered/Resolved]

NARRATIVE: CASE EVENT DATE: 20200226
